FAERS Safety Report 9758478 (Version 1)
Quarter: 2013Q4

REPORT INFORMATION
  Report Type: Spontaneous
  Country: US (occurrence: None)
  Receive Date: 20131216
  Receipt Date: 20131216
  Transmission Date: 20140711
  Serious: Yes (Hospitalization)
  Sender: FDA-Public Use
  Company Number: CABO-13002386

PATIENT
  Age: 63 Year
  Sex: Male
  Weight: 95 kg

DRUGS (1)
  1. COMETRIQ (CABOZANTINIB) CAPSULE [Suspect]
     Indication: MEDULLARY THYROID CANCER
     Dosage: 140 MG, QD, ORAL

REACTIONS (3)
  - Diarrhoea [None]
  - Dehydration [None]
  - Muscular weakness [None]
